FAERS Safety Report 8299025-8 (Version None)
Quarter: 2012Q2

REPORT INFORMATION
  Report Type: 
  Country: None (occurrence: None)
  Receive Date: 20120419
  Receipt Date: 20120416
  Transmission Date: 20120825
  Serious: Yes (Other)
  Sender: FDA-Public Use
  Company Number: US-PFIZER INC-2012094990

PATIENT
  Sex: Male

DRUGS (4)
  1. ATORVASTATIN CALCIUM [Suspect]
     Dosage: UNK
  2. AMBRISENTAN [Suspect]
     Indication: PULMONARY HYPERTENSION
     Dosage: 10 MG, UNK
     Dates: start: 20101011
  3. AMBRISENTAN [Suspect]
     Indication: PULMONARY FIBROSIS
  4. AZATHIOPRINE [Suspect]
     Dosage: UNK

REACTIONS (3)
  - CRYPTOGENIC CIRRHOSIS [None]
  - HEPATIC STEATOSIS [None]
  - VIRAL INFECTION [None]
